FAERS Safety Report 12477562 (Version 1)
Quarter: 2016Q2

REPORT INFORMATION
  Report Type: Spontaneous
  Country: US (occurrence: US)
  Receive Date: 20160617
  Receipt Date: 20160617
  Transmission Date: 20160815
  Serious: No
  Sender: FDA-Public Use
  Company Number: US-009507513-1606USA004022

PATIENT
  Sex: Female

DRUGS (1)
  1. INTRON A [Suspect]
     Active Substance: INTERFERON ALFA-2B
     Indication: LEUKAEMIA
     Dosage: 18 MILLION IU, TWICE WEEKLY
     Route: 058

REACTIONS (3)
  - Exposure during pregnancy [Unknown]
  - Maternal exposure during pregnancy [Unknown]
  - No adverse event [Unknown]
